FAERS Safety Report 18540482 (Version 6)
Quarter: 2021Q2

REPORT INFORMATION
  Report Type: Spontaneous
  Country: US (occurrence: US)
  Receive Date: 20201124
  Receipt Date: 20210409
  Transmission Date: 20210717
  Serious: No
  Sender: FDA-Public Use
  Company Number: US-PFIZER INC-2019544060

PATIENT
  Age: 78 Year
  Sex: Female
  Weight: 74.39 kg

DRUGS (2)
  1. XELJANZ XR [Suspect]
     Active Substance: TOFACITINIB CITRATE
     Dosage: 11 MG, 1X/DAY
     Route: 048
     Dates: start: 20201119
  2. XELJANZ XR [Suspect]
     Active Substance: TOFACITINIB CITRATE
     Indication: RHEUMATOID ARTHRITIS
     Dosage: 11 MG

REACTIONS (4)
  - Cough [Unknown]
  - Inflammation [Unknown]
  - COVID-19 [Recovering/Resolving]
  - Illness [Unknown]

NARRATIVE: CASE EVENT DATE: 202011
